FAERS Safety Report 4707077-4 (Version None)
Quarter: 2005Q3

REPORT INFORMATION
  Report Type: 
  Country: None (occurrence: None)
  Receive Date: 20050706
  Receipt Date: 20050406
  Transmission Date: 20060218
  Serious: Yes (Death)
  Sender: FDA-Public Use
  Company Number: PHBS2005JP04921

PATIENT
  Age: 27 Year
  Sex: Male
  Weight: 48 kg

DRUGS (9)
  1. SANDIMMUNE [Suspect]
     Indication: CORD BLOOD TRANSPLANT THERAPY
     Dosage: 150 MG/D
     Route: 042
     Dates: start: 20040826, end: 20040915
  2. SANDIMMUNE [Suspect]
     Dosage: 100 MG/D
     Route: 042
     Dates: start: 20040925, end: 20041005
  3. METHOTREXATE [Concomitant]
     Dosage: 22-15 MG/D
     Route: 042
     Dates: start: 20040828
  4. SOLU-MEDROL [Concomitant]
     Dosage: 80 MG/D
     Route: 042
     Dates: start: 20040910
  5. MINOPEN [Concomitant]
     Dosage: 200 MG/D
     Route: 042
     Dates: start: 20040828, end: 20040906
  6. PRIMAXIN [Concomitant]
     Dosage: 1 G/D
     Route: 042
     Dates: start: 20040829, end: 20040913
  7. FUNGUARD [Concomitant]
     Dosage: 75 MG/D
     Route: 042
     Dates: start: 20040901, end: 20040906
  8. MABLIN [Concomitant]
     Dosage: 200 MG/D
     Route: 048
     Dates: start: 20040819, end: 20040822
  9. ENDOXAN [Concomitant]
     Dosage: 3000 MG/D
     Route: 042
     Dates: start: 20040824, end: 20040825

REACTIONS (2)
  - BLOOD BILIRUBIN INCREASED [None]
  - VENOOCCLUSIVE LIVER DISEASE [None]
